FAERS Safety Report 14934626 (Version 1)
Quarter: 2018Q2

REPORT INFORMATION
  Report Type: Report from Study
  Country: US (occurrence: US)
  Receive Date: 20180524
  Receipt Date: 20180524
  Transmission Date: 20180711
  Serious: Yes (Hospitalization)
  Sender: FDA-Public Use
  Company Number: PHHO2018US006472

PATIENT
  Age: 73 Year
  Sex: Female
  Weight: 73.2 kg

DRUGS (5)
  1. TRAMETINIB [Suspect]
     Active Substance: TRAMETINIB
     Indication: NON-SMALL CELL LUNG CANCER
     Dosage: 1.5 MG, UNK
     Route: 048
     Dates: start: 20180109, end: 20180115
  2. XARELTO [Suspect]
     Active Substance: RIVAROXABAN
     Indication: PRODUCT USED FOR UNKNOWN INDICATION
     Route: 065
  3. DOCETAXEL. [Suspect]
     Active Substance: DOCETAXEL
     Indication: K-RAS GENE MUTATION
     Dosage: 109 MG, UNK
     Route: 042
     Dates: start: 20171117, end: 20180119
  4. TRAMETINIB [Suspect]
     Active Substance: TRAMETINIB
     Indication: K-RAS GENE MUTATION
     Dosage: UNK
     Route: 048
     Dates: start: 20171117
  5. DOCETAXEL. [Suspect]
     Active Substance: DOCETAXEL
     Indication: NON-SMALL CELL LUNG CANCER
     Dosage: 60 UNK, UNK
     Route: 042
     Dates: start: 20180119

REACTIONS (3)
  - Pulmonary haemorrhage [Recovering/Resolving]
  - Muscular weakness [Recovering/Resolving]
  - Diarrhoea [Recovering/Resolving]

NARRATIVE: CASE EVENT DATE: 20180120
